FAERS Safety Report 13785921 (Version 1)
Quarter: 2017Q3

REPORT INFORMATION
  Report Type: Spontaneous
  Country: KR (occurrence: KR)
  Receive Date: 20170725
  Receipt Date: 20170725
  Transmission Date: 20171127
  Serious: Yes (Other)
  Sender: FDA-Public Use
  Company Number: KR-BAXTER-2017BAX028594

PATIENT
  Age: 66 Year
  Sex: Male

DRUGS (2)
  1. BICART 650 [Suspect]
     Active Substance: SODIUM BICARBONATE
     Route: 010
     Dates: start: 20170710, end: 20170714
  2. BICART 650 [Suspect]
     Active Substance: SODIUM BICARBONATE
     Indication: HAEMODIALYSIS
     Route: 010
     Dates: start: 20170706, end: 20170708

REACTIONS (5)
  - Haemolysis [Recovered/Resolved]
  - Headache [Recovering/Resolving]
  - Blood pressure increased [Recovering/Resolving]
  - Haemorrhage [Recovered/Resolved]
  - Palpitations [Recovering/Resolving]

NARRATIVE: CASE EVENT DATE: 20170714
